FAERS Safety Report 8974134 (Version 1)
Quarter: 2012Q4

REPORT INFORMATION
  Report Type: Spontaneous
  Country: US (occurrence: None)
  Receive Date: 20121213
  Receipt Date: 20121213
  Transmission Date: 20130627
  Serious: Yes (Hospitalization)
  Sender: FDA-Public Use
  Company Number: None

PATIENT
  Age: 98 Year
  Sex: Female

DRUGS (4)
  1. NSAIDS [Suspect]
     Dates: start: 20120817, end: 20120920
  2. IBUPROFEN [Suspect]
  3. SULINDAC [Suspect]
  4. ASA [Concomitant]

REACTIONS (3)
  - Upper gastrointestinal haemorrhage [None]
  - Faeces discoloured [None]
  - Asthenia [None]
